FAERS Safety Report 7075381-3 (Version None)
Quarter: 2010Q4

REPORT INFORMATION
  Report Type: 
  Country: None (occurrence: None)
  Receive Date: 20101030
  Receipt Date: 20100811
  Transmission Date: 20110411
  Serious: No
  Sender: FDA-Public Use
  Company Number: US-WYE-H16912010

PATIENT
  Age: 79 Year
  Sex: Male
  Weight: 84.9 kg

DRUGS (8)
  1. ALAVERT [Suspect]
     Indication: HYPERSENSITIVITY
     Route: 048
     Dates: start: 20100808
  2. COUMADIN [Concomitant]
  3. GLUCOSAMINE [Concomitant]
  4. CELEBREX [Concomitant]
  5. NIASPAN [Concomitant]
  6. FISH OIL, HYDROGENATED [Concomitant]
  7. LIPITOR [Concomitant]
  8. AMIODARONE HYDROCHLORIDE [Concomitant]

REACTIONS (1)
  - DRUG EFFECT DECREASED [None]
